FAERS Safety Report 22382889 (Version 1)
Quarter: 2023Q2

REPORT INFORMATION
  Report Type: Spontaneous
  Country: US (occurrence: None)
  Receive Date: 20230526
  Receipt Date: 20230526
  Transmission Date: 20230722
  Serious: Yes (unspecified)
  Sender: FDA-Public Use
  Company Number: None

PATIENT
  Age: 40 Year
  Sex: Male
  Weight: 105.75 kg

DRUGS (1)
  1. .DELTA.9-TETRAHYDROCANNABINOL\CANNABIDIOL\HERBALS [Suspect]
     Active Substance: .DELTA.9-TETRAHYDROCANNABINOL\CANNABIDIOL\HERBALS
     Indication: Anxiety
     Dosage: OTHER QUANTITY : 1 PIECE;?
     Route: 048
     Dates: start: 20230510, end: 20230511

REACTIONS (2)
  - Blood glucose increased [None]
  - Physical product label issue [None]

NARRATIVE: CASE EVENT DATE: 20230510
